FAERS Safety Report 5566736-4 (Version None)
Quarter: 2007Q4

REPORT INFORMATION
  Report Type: 
  Country: None (occurrence: None)
  Receive Date: 20071219
  Receipt Date: 20071214
  Transmission Date: 20080405
  Serious: Yes (Life-Threatening)
  Sender: FDA-Public Use
  Company Number: IT-AMGEN-US257126

PATIENT
  Sex: Female

DRUGS (3)
  1. ENBREL [Suspect]
     Indication: RHEUMATOID ARTHRITIS
     Dosage: LYOPHILIZED 50MG WEEKLY
     Route: 058
     Dates: start: 20050101, end: 20071213
  2. MEDROL [Concomitant]
     Dosage: NOT REPORTED
     Dates: start: 20050101
  3. INDOXEN [Concomitant]

REACTIONS (3)
  - DROP ATTACKS [None]
  - MUSCULAR WEAKNESS [None]
  - PARAESTHESIA [None]
